FAERS Safety Report 9004797 (Version 1)
Quarter: 2013Q1

REPORT INFORMATION
  Report Type: Spontaneous
  Country: US (occurrence: None)
  Receive Date: 20130107
  Receipt Date: 20130107
  Transmission Date: 20140127
  Serious: Yes (Other)
  Sender: FDA-Public Use
  Company Number: None

PATIENT
  Sex: Female

DRUGS (1)
  1. ATORVASTATIN [Suspect]
     Indication: HYPERLIPIDAEMIA
     Dosage: 1 TABLET -10MG- ONCE DAILY PO
     Route: 048
     Dates: start: 20121220, end: 20121225

REACTIONS (3)
  - Abnormal dreams [None]
  - Photopsia [None]
  - Photosensitivity reaction [None]
